FAERS Safety Report 7471734-X (Version None)
Quarter: 2011Q2

REPORT INFORMATION
  Report Type: 
  Country: None (occurrence: None)
  Receive Date: 20110511
  Receipt Date: 20100421
  Transmission Date: 20111010
  Serious: No
  Sender: FDA-Public Use
  Company Number: A0847430A

PATIENT
  Age: 53 Year
  Sex: Female
  Weight: 78.2 kg

DRUGS (2)
  1. XELODA [Suspect]
     Route: 048
     Dates: start: 20100207
  2. TYKERB [Suspect]
     Dosage: 5TAB PER DAY
     Route: 048
     Dates: start: 20100207

REACTIONS (4)
  - VOMITING [None]
  - NAUSEA [None]
  - SKIN DISCOLOURATION [None]
  - SKIN CHAPPED [None]
